FAERS Safety Report 4393240-1 (Version None)
Quarter: 2004Q3

REPORT INFORMATION
  Report Type: 
  Country: None (occurrence: None)
  Receive Date: 20040702
  Receipt Date: 20040621
  Transmission Date: 20050211
  Serious: Yes (Hospitalization)
  Sender: FDA-Public Use
  Company Number: IT-JNJFOC-20040602272

PATIENT
  Age: 78 Year
  Sex: Female

DRUGS (4)
  1. INFLIXIMAB, RECOMBINANT- BLINDED (INFLIXIMAB, RECOMBINANT) LYOPHILIZED [Suspect]
     Indication: TEMPORAL ARTERITIS
     Dosage: INTRAVENOUS
     Route: 042
     Dates: start: 20040517, end: 20040517
  2. PLACEBO (PLACEBO) LYOPHILIZED POWDER [Suspect]
     Indication: TEMPORAL ARTERITIS
     Dosage: INTRAVENOUS
     Route: 042
     Dates: start: 20040517, end: 20040517
  3. LANSOX (LANSOPRAZOLE) [Concomitant]
  4. LASIX [Concomitant]

REACTIONS (11)
  - ANAEMIA OF CHRONIC DISEASE [None]
  - ASTHENIA [None]
  - CARDIAC FAILURE [None]
  - CHEST X-RAY ABNORMAL [None]
  - CHOLELITHIASIS [None]
  - DYSPNOEA [None]
  - HEPATIC STEATOSIS [None]
  - HEPATOMEGALY [None]
  - INFLAMMATION [None]
  - MITRAL VALVE INCOMPETENCE [None]
  - OEDEMA PERIPHERAL [None]
